FAERS Safety Report 8992826 (Version 1)
Quarter: 2013Q1

REPORT INFORMATION
  Report Type: Spontaneous
  Country: US (occurrence: US)
  Receive Date: 20130102
  Receipt Date: 20130102
  Transmission Date: 20140127
  Serious: Yes (Other)
  Sender: FDA-Public Use
  Company Number: US-SHIRE-ALL1-2012-06452

PATIENT
  Age: 47 None
  Sex: Female
  Weight: 58.05 kg

DRUGS (4)
  1. VYVANSE [Suspect]
     Indication: ATTENTION DEFICIT/HYPERACTIVITY DISORDER
     Dosage: 30 MG, 1X/DAY:QD
     Route: 048
     Dates: start: 2012, end: 2012
  2. VYVANSE [Suspect]
     Dosage: 40 MG, 1X/DAY:QD
     Route: 048
     Dates: start: 2012
  3. LEVOTHYROXINE [Concomitant]
     Indication: THYROID HORMONE REPLACEMENT THERAPY
     Dosage: 137 ?G, 1X/DAY:QD
     Route: 048
     Dates: start: 1992
  4. LAMICTAL [Concomitant]
     Indication: PRODUCT USED FOR UNKNOWN INDICATION
     Dosage: 200 MG IN AM AND 100 MG. IN PM FOR A TOTAL DAILY DOSE OF 300 MG
     Route: 048
     Dates: start: 2005

REACTIONS (2)
  - Depression [Recovered/Resolved]
  - Thyroid function test abnormal [Not Recovered/Not Resolved]
